FAERS Safety Report 7314160-6 (Version None)
Quarter: 2011Q1

REPORT INFORMATION
  Report Type: 
  Country: None (occurrence: None)
  Receive Date: 20110225
  Receipt Date: 20100520
  Transmission Date: 20110831
  Serious: No
  Sender: FDA-Public Use
  Company Number: US-MYLANLABS-2010S1009142

PATIENT
  Age: 32 Year
  Sex: Female

DRUGS (7)
  1. AMNESTEEM [Suspect]
     Route: 048
     Dates: start: 20100101, end: 20100204
  2. AMNESTEEM [Suspect]
     Route: 048
     Dates: start: 20100211, end: 20100320
  3. AMNESTEEM [Suspect]
     Route: 048
     Dates: start: 20100101, end: 20100204
  4. AMNESTEEM [Suspect]
     Indication: ACNE
     Route: 048
     Dates: start: 20091201, end: 20100101
  5. NAPROXEN [Suspect]
     Indication: SINUSITIS
     Route: 048
  6. AMNESTEEM [Suspect]
     Route: 048
     Dates: start: 20100205, end: 20100210
  7. AMNESTEEM [Suspect]
     Route: 048
     Dates: start: 20100320, end: 20100405

REACTIONS (3)
  - BACK PAIN [None]
  - LIP DRY [None]
  - TINNITUS [None]
